FAERS Safety Report 5851684-2 (Version None)
Quarter: 2008Q3

REPORT INFORMATION
  Report Type: 
  Country: None (occurrence: None)
  Receive Date: 20080820
  Receipt Date: 20080813
  Transmission Date: 20090109
  Serious: No
  Sender: FDA-Public Use
  Company Number: US-BOEHRINGER INGELHEIM GMBH, GERMANY-2008-BP-12806BP

PATIENT
  Sex: Male

DRUGS (2)
  1. MICARDIS [Suspect]
     Route: 048
  2. PREDNISONE TAB [Concomitant]

REACTIONS (1)
  - HYPERKALAEMIA [None]
